FAERS Safety Report 9269985 (Version 3)
Quarter: 2014Q3

REPORT INFORMATION
  Report Type: Spontaneous
  Country: BE (occurrence: BE)
  Receive Date: 20130503
  Receipt Date: 20140917
  Transmission Date: 20150326
  Serious: No
  Sender: FDA-Public Use
  Company Number: BE-SANOFI-AVENTIS-2013SA042605

PATIENT
  Age: 41 Year
  Sex: Female
  Weight: 55 kg

DRUGS (2)
  1. QUESTRAN [Concomitant]
     Active Substance: CHOLESTYRAMINE
  2. ARAVA [Suspect]
     Active Substance: LEFLUNOMIDE
     Indication: RHEUMATOID ARTHRITIS
     Route: 048

REACTIONS (1)
  - Exposure during pregnancy [Unknown]
